FAERS Safety Report 10846841 (Version 1)
Quarter: 2015Q1

REPORT INFORMATION
  Report Type: Report from Study
  Country: CN (occurrence: CN)
  Receive Date: 20150220
  Receipt Date: 20150220
  Transmission Date: 20150721
  Serious: Yes (Death)
  Sender: FDA-Public Use
  Company Number: CN-CELGENE-035-CCAZA-14031597

PATIENT
  Age: 39 Year
  Sex: Male
  Weight: 52.5 kg

DRUGS (2)
  1. AZACITIDINE INJECTABLE [Suspect]
     Active Substance: AZACITIDINE
     Indication: MYELODYSPLASTIC SYNDROME
     Route: 058
     Dates: start: 20130723, end: 20130731
  2. AZACITIDINE INJECTABLE [Suspect]
     Active Substance: AZACITIDINE
     Route: 058
     Dates: start: 20140103, end: 20140109

REACTIONS (1)
  - Death [Fatal]

NARRATIVE: CASE EVENT DATE: 20140220
